FAERS Safety Report 4340116-1 (Version None)
Quarter: 2004Q2

REPORT INFORMATION
  Report Type: 
  Country: None (occurrence: None)
  Receive Date: 20040416
  Receipt Date: 20040416
  Transmission Date: 20050107
  Serious: Yes (Life-Threatening, Hospitalization)
  Sender: FDA-Public Use
  Company Number: None

PATIENT
  Sex: Female
  Weight: 86.6 kg

DRUGS (15)
  1. TAXOTERE [Suspect]
     Indication: BREAST CANCER
     Dosage: 148 MG EVERY 2 WE INTRAVENOUS
     Route: 042
     Dates: start: 20040301, end: 20040330
  2. GRANISETRON [Concomitant]
  3. OXYCODONE [Concomitant]
  4. LANSOPRAZOLE [Concomitant]
  5. TEMAZEPAM [Concomitant]
  6. CELECOXIB [Concomitant]
  7. RIZATRIPTAN [Concomitant]
  8. ZOLMITRIPTAN [Concomitant]
  9. TIZANIDINE HCL [Concomitant]
  10. LORAZEPAM [Concomitant]
  11. METOCLOPRAMIDE [Concomitant]
  12. SUCRALFATE [Concomitant]
  13. SENNA/DOCUSATE SODIUM [Concomitant]
  14. SCOPOLAMINE [Concomitant]
  15. ALMOTRIPTAN [Concomitant]

REACTIONS (4)
  - ABDOMINAL PAIN UPPER [None]
  - BURNING SENSATION [None]
  - CHEST PAIN [None]
  - SINUS BRADYCARDIA [None]
